FAERS Safety Report 19936719 (Version 1)
Quarter: 2021Q4

REPORT INFORMATION
  Report Type: Spontaneous
  Country: CN (occurrence: CN)
  Receive Date: 20211008
  Receipt Date: 20211008
  Transmission Date: 20220303
  Serious: Yes (Hospitalization)
  Sender: FDA-Public Use
  Company Number: CN-BAXTER-2021BAX031333

PATIENT
  Age: 46 Year
  Sex: Female
  Weight: 70 kg

DRUGS (3)
  1. CYCLOPHOSPHAMIDE [Suspect]
     Active Substance: CYCLOPHOSPHAMIDE
     Indication: Breast cancer
     Dosage: PRIOR DRUG
     Route: 041
  2. CYCLOPHOSPHAMIDE [Suspect]
     Active Substance: CYCLOPHOSPHAMIDE
     Dosage: CYCLOPHOSPHAMIDE FOR INJECTION 1G + 0.9% SODIUM CHLORIDE INJECTION 100ML FOR ONE CHEMOTHERAPY
     Route: 041
     Dates: start: 20210918, end: 20210918
  3. SODIUM CHLORIDE [Suspect]
     Active Substance: SODIUM CHLORIDE
     Indication: Medication dilution
     Dosage: CYCLOPHOSPHAMIDE FOR INJECTION 1G + 0.9% SODIUM CHLORIDE INJECTION 100ML FOR ONE CHEMOTHERAPY
     Route: 041
     Dates: start: 20210918, end: 20210918

REACTIONS (2)
  - White blood cell count decreased [Recovering/Resolving]
  - Nausea [Unknown]

NARRATIVE: CASE EVENT DATE: 20210918
